FAERS Safety Report 8423915-6 (Version None)
Quarter: 2012Q2

REPORT INFORMATION
  Report Type: 
  Country: None (occurrence: None)
  Receive Date: 20120608
  Receipt Date: 20120403
  Transmission Date: 20120825
  Serious: No
  Sender: FDA-Public Use
  Company Number: US-ASTRAZENECA-2012SE21515

PATIENT
  Age: 49 Year
  Sex: Female

DRUGS (3)
  1. TOPROL-XL [Suspect]
     Route: 048
  2. NEXIUM [Suspect]
     Route: 048
  3. ATACAND [Suspect]
     Route: 048

REACTIONS (3)
  - MALAISE [None]
  - HYPERTENSION [None]
  - HOT FLUSH [None]
